FAERS Safety Report 22953026 (Version 2)
Quarter: 2025Q2

REPORT INFORMATION
  Report Type: Spontaneous
  Country: FR (occurrence: None)
  Receive Date: 20230918
  Receipt Date: 20250417
  Transmission Date: 20250716
  Serious: Yes (Hospitalization)
  Sender: ORION
  Company Number: FR-Orion Corporation ORION PHARMA-TREX2023-0195

PATIENT
  Age: 76 Year
  Sex: Female

DRUGS (12)
  1. METHOTREXATE [Interacting]
     Active Substance: METHOTREXATE
     Indication: Rheumatoid arthritis
     Dates: end: 20230516
  2. LANSOPRAZOLE [Interacting]
     Active Substance: LANSOPRAZOLE
     Indication: Gastric ulcer
     Dates: start: 20230323, end: 20230518
  3. CALCIUM\CHOLECALCIFEROL [Concomitant]
     Active Substance: CALCIUM\CHOLECALCIFEROL
     Dates: start: 202301
  4. PREGABALIN [Concomitant]
     Active Substance: PREGABALIN
     Dates: start: 202301
  5. ACETAMINOPHEN [Concomitant]
     Active Substance: ACETAMINOPHEN
     Dates: start: 20230502
  6. CHOLECALCIFEROL [Concomitant]
     Active Substance: CHOLECALCIFEROL
     Dates: start: 202301
  7. POTASSIUM CHLORIDE [Concomitant]
     Active Substance: POTASSIUM CHLORIDE
     Dates: start: 202303
  8. ORENCIA [Concomitant]
     Active Substance: ABATACEPT
     Indication: Rheumatoid arthritis
     Dosage: STRENGTH: 125 MG
     Dates: end: 20230517
  9. PREDNISONE [Concomitant]
     Active Substance: PREDNISONE
     Dates: start: 202301
  10. APIXABAN [Concomitant]
     Active Substance: APIXABAN
     Dates: start: 202301, end: 20230518
  11. INSULIN GLARGINE [Concomitant]
     Active Substance: INSULIN GLARGINE
     Dates: start: 202303
  12. FOLIC ACID [Concomitant]
     Active Substance: FOLIC ACID
     Dates: start: 202301, end: 20230513

REACTIONS (3)
  - Drug interaction [Recovered/Resolved]
  - Mouth ulceration [Recovered/Resolved]
  - Pancytopenia [Recovered/Resolved]

NARRATIVE: CASE EVENT DATE: 20230508
